FAERS Safety Report 16001269 (Version 2)
Quarter: 2019Q1

REPORT INFORMATION
  Report Type: Spontaneous
  Country: FR (occurrence: FR)
  Receive Date: 20190225
  Receipt Date: 20190326
  Transmission Date: 20190418
  Serious: Yes (Other)
  Sender: FDA-Public Use
  Company Number: FR-PFIZER INC-2019072321

PATIENT
  Age: 93 Year
  Sex: Female
  Weight: 65 kg

DRUGS (10)
  1. LYRICA [Suspect]
     Active Substance: PREGABALIN
     Indication: NEURALGIA
     Dosage: 25 MG, DAILY
  2. PREGABALINE BIOGARAN [Suspect]
     Active Substance: PREGABALIN
     Indication: NEURALGIA
     Dosage: 25 MG, 1X/DAY
     Route: 048
     Dates: start: 20180904, end: 20190210
  3. LYRICA [Suspect]
     Active Substance: PREGABALIN
     Indication: MYALGIA
  4. PREGABALINE BIOGARAN [Suspect]
     Active Substance: PREGABALIN
     Indication: MYALGIA
  5. ELIQUIS [Concomitant]
     Active Substance: APIXABAN
     Dosage: 2.5 UNK, 2X/DAY
     Route: 048
     Dates: start: 2016
  6. LYRICA [Suspect]
     Active Substance: PREGABALIN
     Indication: ARTHRALGIA
  7. PREGABALINE BIOGARAN [Suspect]
     Active Substance: PREGABALIN
     Indication: ARTHRALGIA
  8. AMLODIPINE [Concomitant]
     Active Substance: AMLODIPINE BESYLATE
     Dosage: 5 UNK, 1X/DAY
     Route: 048
     Dates: start: 2015
  9. KENZEN [Concomitant]
     Active Substance: CANDESARTAN
     Dosage: 32 UNK, 1X/DAY
     Route: 048
     Dates: start: 1999
  10. TENORMINE [Concomitant]
     Active Substance: ATENOLOL
     Dosage: 100 UNK, 1X/DAY
     Route: 048
     Dates: start: 1999

REACTIONS (1)
  - Neutropenia [Recovering/Resolving]

NARRATIVE: CASE EVENT DATE: 20181002
